FAERS Safety Report 6444735-8 (Version None)
Quarter: 2009Q4

REPORT INFORMATION
  Report Type: 
  Country: None (occurrence: None)
  Receive Date: 20091118
  Receipt Date: 20091111
  Transmission Date: 20100525
  Serious: Yes (Other)
  Sender: FDA-Public Use
  Company Number: A0817487A

PATIENT
  Age: 29 Year
  Sex: Female

DRUGS (3)
  1. FLONASE [Suspect]
     Indication: HYPERSENSITIVITY
     Dosage: 2SPR UNKNOWN
     Route: 045
  2. CITALOPRAM HYDROBROMIDE [Suspect]
     Indication: DEPRESSION
     Dosage: 40MG PER DAY
     Route: 048
     Dates: start: 20081230
  3. NEXIUM [Suspect]
     Indication: DYSPEPSIA
     Dosage: 40MG TWICE PER DAY
     Route: 048

REACTIONS (3)
  - DRUG EXPOSURE DURING PREGNANCY [None]
  - INTRA-UTERINE DEATH [None]
  - PREGNANCY [None]
